FAERS Safety Report 6000917-0 (Version None)
Quarter: 2008Q4

REPORT INFORMATION
  Report Type: 
  Country: None (occurrence: None)
  Receive Date: 20081215
  Receipt Date: 20081204
  Transmission Date: 20090506
  Serious: Yes (Hospitalization)
  Sender: FDA-Public Use
  Company Number: US-PFIZER INC-2008065647

PATIENT
  Sex: Male
  Weight: 83 kg

DRUGS (8)
  1. INHALED HUMAN INSULIN [Suspect]
     Dosage: UNK
     Route: 055
     Dates: start: 20060111
  2. *INSULIN GLARGINE [Suspect]
     Dosage: 34 IU, 1X/DAY
     Route: 058
     Dates: start: 20060111
  3. LOVASTATIN [Concomitant]
     Route: 048
     Dates: start: 20050401
  4. DILTIAZEM [Concomitant]
     Route: 048
     Dates: start: 19950101
  5. ISOSORBIDE MONONITRATE [Concomitant]
     Route: 048
     Dates: start: 19950101
  6. ACETYLSALICYLIC ACID [Concomitant]
     Route: 048
     Dates: start: 19950101
  7. CLARITIN-D [Concomitant]
     Route: 048
     Dates: start: 20060208
  8. ALEVE [Concomitant]
     Route: 048
     Dates: start: 20071216

REACTIONS (1)
  - CORONARY ARTERY DISEASE [None]
